FAERS Safety Report 11422281 (Version 3)
Quarter: 2016Q2

REPORT INFORMATION
  Report Type: Spontaneous
  Country: US (occurrence: US)
  Receive Date: 20150827
  Receipt Date: 20160415
  Transmission Date: 20160815
  Serious: Yes (Hospitalization)
  Sender: FDA-Public Use
  Company Number: US-ACCORD-033325

PATIENT
  Age: 61 Year
  Sex: Female

DRUGS (5)
  1. CARBOPLATIN. [Suspect]
     Active Substance: CARBOPLATIN
     Indication: OVARIAN CANCER STAGE III
     Dosage: INITIALLY RECEIVED FROM DEC-2012 TO JUN-2013 WEEKLY BASIS.?RESTARTED AGAIN 0.2, 1.7, AND 17.2 MG.
  2. DECADRON [Concomitant]
     Active Substance: DEXAMETHASONE
     Dosage: PRECHEMOTHERAPY MEDICATION
  3. OLAPARIB [Concomitant]
     Active Substance: OLAPARIB
     Indication: OVARIAN CANCER STAGE III
     Dates: start: 201212, end: 201302
  4. PACLITAXEL/PACLITAXEL LIPOSOME [Suspect]
     Active Substance: PACLITAXEL
     Indication: OVARIAN CANCER STAGE III
     Dosage: INITIALLY RECEIVED FROM DEC-2012 TO JUN-2013 WEEKLY BASIS.?RESTARTED AGAIN.
     Dates: start: 20130820
  5. DIPHENHYDRAMINE. [Concomitant]
     Active Substance: DIPHENHYDRAMINE
     Dosage: PRECHEMOTHERAPY MEDICATION

REACTIONS (1)
  - Autoimmune haemolytic anaemia [Recovered/Resolved]
